FAERS Safety Report 5582966-X (Version None)
Quarter: 2007Q4

REPORT INFORMATION
  Report Type: 
  Country: None (occurrence: None)
  Receive Date: 20071231
  Receipt Date: 20071217
  Transmission Date: 20080405
  Serious: Yes (Hospitalization)
  Sender: FDA-Public Use
  Company Number: TCI2007A06849

PATIENT
  Age: 79 Year
  Sex: Male

DRUGS (10)
  1. ACTOS [Suspect]
     Indication: DIABETES MELLITUS
     Dosage: 15 MG (15 MG, 1 IN 1 D) PER ORAL
     Route: 048
     Dates: start: 20070920, end: 20070920
  2. BASEN OD TABLETS 0.3 (VOGLIBOSE) [Concomitant]
  3. NORVASC [Concomitant]
  4. NATEGLINIDE [Concomitant]
  5. LORCAM (LORNOXICAM) [Concomitant]
  6. ASPIRIN [Concomitant]
  7. FLIVAS (NAFTOPIDIL) [Concomitant]
  8. SOLDOLON (SOFALCONE) [Concomitant]
  9. UROCALUN (SALICIN) [Concomitant]
  10. HERBAL EXTRACT NOS [Concomitant]

REACTIONS (2)
  - DRUG INEFFECTIVE [None]
  - ERYTHEMA MULTIFORME [None]
